FAERS Safety Report 25588706 (Version 1)
Quarter: 2025Q3

REPORT INFORMATION
  Report Type: Spontaneous
  Country: GB (occurrence: GB)
  Receive Date: 20250722
  Receipt Date: 20250722
  Transmission Date: 20251020
  Serious: Yes (Other)
  Sender: AUROBINDO
  Company Number: GB-MHRA-EMIS-10198-4debd14b-b574-4e52-81e8-cb30f274e637

PATIENT
  Age: 66 Year
  Sex: Female
  Weight: 86 kg

DRUGS (7)
  1. GABAPENTIN [Suspect]
     Active Substance: GABAPENTIN
     Indication: Back pain
     Dosage: TAKE ONE CAPSULE ONCE DAILY ON
     Route: 065
     Dates: start: 20250624
  2. GABAPENTIN [Suspect]
     Active Substance: GABAPENTIN
     Dosage: TAKE ONE CAPSULE ONCE DAILY ON D
     Route: 065
     Dates: start: 20250625
  3. GABAPENTIN [Suspect]
     Active Substance: GABAPENTIN
     Dosage: TAKE ONE CAPSULE ONCE DAILY ON D
     Route: 065
     Dates: start: 20250623
  4. BECLOMETHASONE DIPROPIONATE\FORMOTEROL FUMARATE [Concomitant]
     Active Substance: BECLOMETHASONE DIPROPIONATE\FORMOTEROL FUMARATE
     Indication: Product used for unknown indication
     Route: 065
     Dates: start: 20250410, end: 20250523
  5. TRAMADOL [Concomitant]
     Active Substance: TRAMADOL
     Indication: Product used for unknown indication
     Route: 065
     Dates: start: 20250506, end: 20250604
  6. Macrogol ab [Concomitant]
     Indication: Product used for unknown indication
     Route: 065
     Dates: start: 20250506, end: 20250618
  7. MORPHINE [Concomitant]
     Active Substance: MORPHINE
     Indication: Product used for unknown indication
     Route: 065
     Dates: start: 20250707

REACTIONS (3)
  - Joint swelling [Recovered/Resolved]
  - Feeling abnormal [Recovered/Resolved]
  - Rash [Recovered/Resolved]

NARRATIVE: CASE EVENT DATE: 20250703
